FAERS Safety Report 14759474 (Version 8)
Quarter: 2021Q3

REPORT INFORMATION
  Report Type: Report from Study
  Country: CA (occurrence: CA)
  Receive Date: 20180413
  Receipt Date: 20210927
  Transmission Date: 20211014
  Serious: Yes (Other)
  Sender: FDA-Public Use
  Company Number: PHHY2018CA062608

PATIENT
  Age: 51 Year
  Sex: Male

DRUGS (9)
  1. SULFASALAZINE. [Concomitant]
     Active Substance: SULFASALAZINE
     Indication: PRODUCT USED FOR UNKNOWN INDICATION
     Dosage: UNK
     Route: 065
  2. NAPROXEN. [Concomitant]
     Active Substance: NAPROXEN
     Indication: PRODUCT USED FOR UNKNOWN INDICATION
     Dosage: UNK
     Route: 065
     Dates: start: 2010
  3. COSENTYX [Suspect]
     Active Substance: SECUKINUMAB
     Indication: ANKYLOSING SPONDYLITIS
     Dosage: 150 MG, QMO
     Route: 058
     Dates: start: 20180201
  4. OLMESARTAN [Suspect]
     Active Substance: OLMESARTAN
     Indication: PRODUCT USED FOR UNKNOWN INDICATION
     Dosage: UNK
     Route: 048
  5. COSENTYX [Suspect]
     Active Substance: SECUKINUMAB
     Dosage: 150 MG, QMO
     Route: 058
     Dates: start: 20201216
  6. PREDNISONE. [Concomitant]
     Active Substance: PREDNISONE
     Indication: PRODUCT USED FOR UNKNOWN INDICATION
     Dosage: UNK
     Route: 065
     Dates: start: 2010, end: 202005
  7. COSENTYX [Suspect]
     Active Substance: SECUKINUMAB
     Dosage: 150 MG, QMO
     Route: 058
     Dates: start: 20180601, end: 20180701
  8. COSENTYX [Suspect]
     Active Substance: SECUKINUMAB
     Dosage: UNK
     Route: 058
     Dates: start: 201807, end: 201903
  9. IBUPROFEN. [Concomitant]
     Active Substance: IBUPROFEN
     Indication: PRODUCT USED FOR UNKNOWN INDICATION
     Dosage: UNK
     Route: 065
     Dates: start: 2000

REACTIONS (31)
  - Musculoskeletal stiffness [Unknown]
  - Osteoarthritis [Unknown]
  - Nipple pain [Unknown]
  - Malignant melanoma [Unknown]
  - Neck pain [Recovering/Resolving]
  - Headache [Recovering/Resolving]
  - Musculoskeletal discomfort [Unknown]
  - Arthralgia [Unknown]
  - Iritis [Unknown]
  - Pain in extremity [Unknown]
  - Cough [Unknown]
  - Abdominal distension [Unknown]
  - Influenza like illness [Unknown]
  - Fall [Unknown]
  - Nasopharyngitis [Unknown]
  - Bladder discomfort [Unknown]
  - Arthritis [Unknown]
  - Burning sensation [Unknown]
  - Spinal disorder [Unknown]
  - Diarrhoea [Unknown]
  - Drug ineffective [Unknown]
  - Feeling abnormal [Unknown]
  - Rotator cuff syndrome [Unknown]
  - Breast pain [Unknown]
  - Tenderness [Unknown]
  - Movement disorder [Unknown]
  - Tendon disorder [Unknown]
  - Respiratory disorder [Unknown]
  - Urinary tract infection [Not Recovered/Not Resolved]
  - Joint range of motion decreased [Unknown]
  - Muscle spasms [Unknown]

NARRATIVE: CASE EVENT DATE: 201806
